FAERS Safety Report 9651401 (Version 2)
Quarter: 2013Q4

REPORT INFORMATION
  Report Type: Spontaneous
  Country: US (occurrence: US)
  Receive Date: 20131029
  Receipt Date: 20131219
  Transmission Date: 20140711
  Serious: No
  Sender: FDA-Public Use
  Company Number: US-PFIZER INC-2013304503

PATIENT
  Sex: Female

DRUGS (2)
  1. ADVIL [Suspect]
     Dosage: UNK
  2. ADVIL PM [Suspect]
     Dosage: UNK

REACTIONS (3)
  - Poor quality drug administered [Unknown]
  - Somnolence [Unknown]
  - Product commingling [Unknown]
